FAERS Safety Report 16697323 (Version 1)
Quarter: 2019Q3

REPORT INFORMATION
  Report Type: Spontaneous
  Country: US (occurrence: US)
  Receive Date: 20190813
  Receipt Date: 20190813
  Transmission Date: 20191004
  Serious: No
  Sender: FDA-Public Use
  Company Number: US-PFIZER INC-2019343435

PATIENT
  Sex: Male

DRUGS (1)
  1. ADVIL [Suspect]
     Active Substance: IBUPROFEN
     Dosage: UNK [TAKING 1-3 FOR 5 DAYS/ SOMETIMES TAKE 3 AT ONCE/ SOMETIMES TAKE TWO]

REACTIONS (2)
  - Intentional product misuse [Unknown]
  - Drug ineffective [Unknown]
